FAERS Safety Report 6671508-3 (Version None)
Quarter: 2010Q2

REPORT INFORMATION
  Report Type: 
  Country: None (occurrence: None)
  Receive Date: 20100407
  Receipt Date: 20100319
  Transmission Date: 20101027
  Serious: Yes (Hospitalization)
  Sender: FDA-Public Use
  Company Number: CH-MPIJNJ-2010-01250

PATIENT

DRUGS (11)
  1. VELCADE [Suspect]
     Indication: MULTIPLE MYELOMA
  2. CAELYX [Concomitant]
     Indication: MULTIPLE MYELOMA
     Dosage: 54 MG, UNK
     Route: 042
     Dates: start: 20100121
  3. THERAPEUTIC RADIOPHARMACEUTICALS [Concomitant]
     Indication: MULTIPLE MYELOMA
     Dosage: 3 DF, UNK
     Dates: start: 20100108, end: 20100121
  4. CYCLOSPORINE [Concomitant]
     Dosage: 25 MG, UNK
  5. BACTRIM [Concomitant]
  6. FLUCONAZOLE [Concomitant]
     Dosage: 400 MG, UNK
  7. VALACICLOVIR [Concomitant]
     Dosage: 500 MG, UNK
  8. CALCIUM D3                         /00944201/ [Concomitant]
  9. MAGNESIUM [Concomitant]
  10. PREGABALIN [Concomitant]
     Dosage: 75 MG, UNK
  11. PANTOZOL                           /01263202/ [Concomitant]
     Dosage: 40 MG, UNK

REACTIONS (1)
  - GASTROENTERITIS ESCHERICHIA COLI [None]
